FAERS Safety Report 9284449 (Version 1)
Quarter: 2013Q2

REPORT INFORMATION
  Report Type: Spontaneous
  Country: US (occurrence: US)
  Receive Date: 20130510
  Receipt Date: 20130510
  Transmission Date: 20140414
  Serious: Yes (Hospitalization)
  Sender: FDA-Public Use
  Company Number: US-DX529-2013DX000080

PATIENT
  Age: 51 Year
  Sex: Female
  Weight: 90.72 kg

DRUGS (15)
  1. KALBITOR [Suspect]
     Indication: HEREDITARY ANGIOEDEMA
     Route: 058
     Dates: start: 20130427, end: 20130427
  2. KALBITOR [Suspect]
     Indication: HEREDITARY ANGIOEDEMA
     Route: 058
     Dates: start: 20120326
  3. KALBITOR [Suspect]
     Indication: HEREDITARY ANGIOEDEMA
     Route: 058
     Dates: start: 20120326
  4. KALBITOR [Suspect]
     Indication: HEREDITARY ANGIOEDEMA
     Route: 058
  5. DANAZOL [Concomitant]
     Indication: HEREDITARY ANGIOEDEMA
     Route: 048
  6. BENADRYL /00000402/ [Concomitant]
     Indication: PRURITUS
     Route: 048
  7. ENABLEX /01760401/ [Concomitant]
     Indication: URINARY INCONTINENCE
     Route: 048
  8. NITROSTAT [Concomitant]
     Indication: CHEST PAIN
     Route: 060
  9. KAOPECTATE /00139305/ [Concomitant]
     Indication: DIARRHOEA
     Route: 048
  10. EXCEDRIN /00110301/ [Concomitant]
     Indication: HEADACHE
     Dosage: DOSE UNIT:1
     Route: 048
  11. ACETAMINOPHEN W/CODEINE [Concomitant]
     Indication: PRODUCT USED FOR UNKNOWN INDICATION
     Route: 048
  12. SINEMET [Concomitant]
     Indication: PARKINSONISM
     Dosage: DOSE UNIT:1
     Route: 048
     Dates: start: 20120302
  13. PAXIL /00830802/ [Concomitant]
     Indication: ANXIETY
     Route: 048
     Dates: start: 20120823
  14. PAXIL /00830802/ [Concomitant]
     Indication: DEPRESSION
     Route: 048
     Dates: start: 20120823
  15. MYSOLINE [Concomitant]
     Indication: PRODUCT USED FOR UNKNOWN INDICATION
     Route: 048
     Dates: start: 20120907

REACTIONS (13)
  - Pneumonia [Unknown]
  - Anaphylactic reaction [Recovered/Resolved]
  - Mobility decreased [Recovered/Resolved]
  - Anxiety [Unknown]
  - Depression [Unknown]
  - Chest pain [Unknown]
  - Hypotension [Recovered/Resolved]
  - Tachycardia [Recovered/Resolved]
  - Hyperhidrosis [Recovered/Resolved]
  - Vomiting [Recovered/Resolved]
  - Flushing [Unknown]
  - Pruritus [Unknown]
  - Drug ineffective [Unknown]
